FAERS Safety Report 23198854 (Version 1)
Quarter: 2023Q4

REPORT INFORMATION
  Report Type: Spontaneous
  Country: GB (occurrence: GB)
  Receive Date: 20231117
  Receipt Date: 20231117
  Transmission Date: 20240110
  Serious: Yes (Disabling, Other)
  Sender: FDA-Public Use
  Company Number: None

PATIENT
  Age: 40 Year
  Sex: Female

DRUGS (1)
  1. DULOXETINE HYDROCHLORIDE [Suspect]
     Active Substance: DULOXETINE HYDROCHLORIDE
     Indication: Product used for unknown indication
     Dosage: UNK UNK, UNKNOWN
     Route: 065

REACTIONS (36)
  - Dyspnoea [Not Recovered/Not Resolved]
  - Panic attack [Not Recovered/Not Resolved]
  - Paranoia [Not Recovered/Not Resolved]
  - Self-injurious ideation [Not Recovered/Not Resolved]
  - Sleep terror [Not Recovered/Not Resolved]
  - Intrusive thoughts [Not Recovered/Not Resolved]
  - Influenza [Recovered/Resolved]
  - Micturition urgency [Recovered/Resolved]
  - Electric shock sensation [Not Recovered/Not Resolved]
  - Chest pain [Not Recovered/Not Resolved]
  - Hallucination, auditory [Not Recovered/Not Resolved]
  - Nightmare [Not Recovered/Not Resolved]
  - Insomnia [Not Recovered/Not Resolved]
  - Palpitations [Not Recovered/Not Resolved]
  - Visual impairment [Not Recovered/Not Resolved]
  - Abnormal dreams [Not Recovered/Not Resolved]
  - Anxiety [Not Recovered/Not Resolved]
  - Nausea [Not Recovered/Not Resolved]
  - Headache [Not Recovered/Not Resolved]
  - Fatigue [Not Recovered/Not Resolved]
  - Suicidal ideation [Not Recovered/Not Resolved]
  - Anger [Not Recovered/Not Resolved]
  - Myalgia [Not Recovered/Not Resolved]
  - Nervousness [Not Recovered/Not Resolved]
  - Tinnitus [Not Recovered/Not Resolved]
  - Irritability [Not Recovered/Not Resolved]
  - Dizziness [Not Recovered/Not Resolved]
  - Hypersensitivity [Recovered/Resolved]
  - Hyperhidrosis [Recovering/Resolving]
  - Dry mouth [Recovering/Resolving]
  - Sexual dysfunction [Recovering/Resolving]
  - Dyspepsia [Recovering/Resolving]
  - Dyskinesia [Recovering/Resolving]
  - Constipation [Recovering/Resolving]
  - Tremor [Recovered/Resolved]
  - Nocturia [Recovering/Resolving]

NARRATIVE: CASE EVENT DATE: 20230808
